FAERS Safety Report 18224127 (Version 2)
Quarter: 2020Q4

REPORT INFORMATION
  Report Type: Spontaneous
  Country: US (occurrence: US)
  Receive Date: 20200902
  Receipt Date: 20201022
  Transmission Date: 20210113
  Serious: No
  Sender: FDA-Public Use
  Company Number: US-PFIZER INC-2020338079

PATIENT
  Age: 59 Year
  Sex: Female

DRUGS (2)
  1. IBRANCE [Suspect]
     Active Substance: PALBOCICLIB
     Indication: BREAST CANCER FEMALE
     Dosage: 100 MG, CYCLIC (ONCE A DAY X 21 DAYS Q (EVERY) 28 DAYS)
     Dates: start: 20180201
  2. IBRANCE [Suspect]
     Active Substance: PALBOCICLIB
     Dosage: 100 MG
     Dates: start: 20200922

REACTIONS (5)
  - Irritability [Unknown]
  - Hair texture abnormal [Unknown]
  - Product dose omission issue [Unknown]
  - Fatigue [Unknown]
  - Dry skin [Unknown]
